FAERS Safety Report 13993396 (Version 1)
Quarter: 2017Q3

REPORT INFORMATION
  Report Type: Spontaneous
  Country: ES (occurrence: ES)
  Receive Date: 20170920
  Receipt Date: 20170920
  Transmission Date: 20171128
  Serious: Yes (Other)
  Sender: FDA-Public Use
  Company Number: ES-AMGEN-ESPSP2017140012

PATIENT
  Age: 65 Year
  Sex: Female

DRUGS (4)
  1. HIDROFEROL [Concomitant]
     Active Substance: CALCIFEDIOL
     Dosage: 266 MUG, (10 DRINKABLE AMPOULES OF 1.5 ML) UNK
     Route: 048
  2. ACETYLSALICYLIC ACID [Concomitant]
     Active Substance: ASPIRIN
     Route: 048
  3. IRBESARTAN. [Concomitant]
     Active Substance: IRBESARTAN
  4. PROLIA [Suspect]
     Active Substance: DENOSUMAB
     Indication: OSTEOPOROSIS
     Dosage: 60 MG, Q6MO
     Route: 065
     Dates: start: 20170706

REACTIONS (1)
  - Feeling cold [Recovering/Resolving]

NARRATIVE: CASE EVENT DATE: 20170720
